FAERS Safety Report 10334822 (Version 3)
Quarter: 2014Q4

REPORT INFORMATION
  Report Type: Report from Study
  Country: US (occurrence: US)
  Receive Date: 20140723
  Receipt Date: 20141022
  Transmission Date: 20150528
  Serious: No
  Sender: FDA-Public Use
  Company Number: US-009507513-1405USA004355

PATIENT
  Age: 73 Year
  Sex: Male

DRUGS (7)
  1. ASPIR-81 [Concomitant]
     Active Substance: ASPIRIN
     Dosage: 1 TABLET DELAYED RELEASE, QD
     Route: 048
  2. PEMBROLIZUMAB. [Suspect]
     Active Substance: PEMBROLIZUMAB
     Indication: METASTATIC MALIGNANT MELANOMA
     Dosage: 2 MG/KG, Q3W
     Route: 042
     Dates: start: 20140415, end: 20140911
  3. FERROUS SULFATE [Concomitant]
     Active Substance: FERROUS SULFATE\FERROUS SULFATE, DRIED
     Dosage: 1 CAPSULE BY MOUTH ONE TIME DAILY
     Route: 048
  4. HYDROCHLOROTHIAZIDE. [Concomitant]
     Active Substance: HYDROCHLOROTHIAZIDE
     Dosage: 0.5-0.25 CAPSULES BY MOUTH ONE TIME DAILY
     Route: 048
  5. MAGNESIUM (UNSPECIFIED) [Concomitant]
     Active Substance: MAGNESIUM
     Dosage: 1 TABLET BY MOUTH ONE TIME DAILY
     Route: 048
  6. PREDNISONE. [Concomitant]
     Active Substance: PREDNISONE
     Dosage: 1.5-7 TABLETS BY MOUTH ONE TIME DAILY
     Route: 048
  7. PYRIDOXINE [Concomitant]
     Active Substance: PYRIDOXINE
     Dosage: TOTAL DAILY DOSE: 0.5-2 TABLETS BY MOUTH ONE TIME DAILY
     Route: 048

REACTIONS (2)
  - Fatigue [Recovered/Resolved]
  - Fatigue [Not Recovered/Not Resolved]

NARRATIVE: CASE EVENT DATE: 20140505
